FAERS Safety Report 12901287 (Version 2)
Quarter: 2016Q4

REPORT INFORMATION
  Report Type: Spontaneous
  Country: US (occurrence: US)
  Receive Date: 20161101
  Receipt Date: 20161109
  Transmission Date: 20170207
  Serious: Yes (Other)
  Sender: FDA-Public Use
  Company Number: US-JAZZ-2016-US-021327

PATIENT
  Sex: Male

DRUGS (2)
  1. PRIALT [Suspect]
     Active Substance: ZICONOTIDE ACETATE
     Dosage: 0.241 ?G, QH
     Route: 037
     Dates: start: 20161031
  2. PRIALT [Suspect]
     Active Substance: ZICONOTIDE ACETATE
     Indication: PAIN
     Dosage: 0.483 ?G, QH
     Route: 037
     Dates: end: 20161031

REACTIONS (6)
  - Cerebrovascular accident [Unknown]
  - Bedridden [Unknown]
  - Depression [Unknown]
  - Toxicity to various agents [Unknown]
  - Delirium [Unknown]
  - Tremor [Unknown]

NARRATIVE: CASE EVENT DATE: 201610
